FAERS Safety Report 5879872-X (Version None)
Quarter: 2008Q3

REPORT INFORMATION
  Report Type: 
  Country: None (occurrence: None)
  Receive Date: 20080911
  Receipt Date: 20080911
  Transmission Date: 20090109
  Serious: Yes (Hospitalization)
  Sender: FDA-Public Use
  Company Number: None

PATIENT
  Sex: Female
  Weight: 76.6579 kg

DRUGS (1)
  1. SYMBYAX [Suspect]
     Indication: DEPRESSION
     Dosage: 1 DAILY
     Dates: start: 20071212, end: 20071222

REACTIONS (5)
  - DELIRIUM [None]
  - HALLUCINATION [None]
  - HALLUCINATION, VISUAL [None]
  - LOSS OF CONSCIOUSNESS [None]
  - PHOTOPSIA [None]
